FAERS Safety Report 17928550 (Version 10)
Quarter: 2021Q1

REPORT INFORMATION
  Report Type: Spontaneous
  Country: CA (occurrence: CA)
  Receive Date: 20200623
  Receipt Date: 20210309
  Transmission Date: 20210419
  Serious: Yes (Other)
  Sender: FDA-Public Use
  Company Number: CA-CELLTRION INC.-2019CA021616

PATIENT

DRUGS (21)
  1. INFLECTRA [Suspect]
     Active Substance: INFLIXIMAB-DYYB
     Dosage: 400 MG AT 0, 2, 6 WEEKS, THEN EVERY 8 WEEKS
     Route: 042
     Dates: start: 20190625
  2. INFLECTRA [Suspect]
     Active Substance: INFLIXIMAB-DYYB
     Dosage: 400 MG AT 0, 2, 6 WEEKS, THEN EVERY 8 WEEKS
     Route: 042
     Dates: start: 20191218
  3. LEVOTHYROXINE SODIUM. [Concomitant]
     Active Substance: LEVOTHYROXINE SODIUM
     Dosage: 0.05 MG, DAILY
     Route: 065
  4. INFLECTRA [Suspect]
     Active Substance: INFLIXIMAB-DYYB
     Dosage: 400 MG, EVERY 6 WEEKS
     Route: 042
     Dates: start: 20200507
  5. INFLECTRA [Suspect]
     Active Substance: INFLIXIMAB-DYYB
     Dosage: 800 MG EVERY 6 WEEKS
     Route: 042
     Dates: start: 20201023
  6. INFLECTRA [Suspect]
     Active Substance: INFLIXIMAB-DYYB
     Indication: CROHN^S DISEASE
     Dosage: 400 MG AT 0, 2, 6 WEEKS, THEN EVERY 8 WEEKS
     Route: 042
     Dates: start: 20190514, end: 20200214
  7. PREDNISONE. [Concomitant]
     Active Substance: PREDNISONE
     Indication: CONDITION AGGRAVATED
     Dosage: 50 MG PRN (AS NEEDED)
     Route: 065
  8. INFLECTRA [Suspect]
     Active Substance: INFLIXIMAB-DYYB
     Dosage: 400 MG AT 0, 2, 6 WEEKS, THEN EVERY 8 WEEKS
     Route: 042
     Dates: start: 20191018
  9. INFLECTRA [Suspect]
     Active Substance: INFLIXIMAB-DYYB
     Dosage: 800 MG EVERY 6 WEEKS
     Route: 042
     Dates: start: 20200806
  10. INFLECTRA [Suspect]
     Active Substance: INFLIXIMAB-DYYB
     Dosage: 800 MG EVERY 6 WEEKS
     Route: 042
     Dates: start: 20200914
  11. INFLECTRA [Suspect]
     Active Substance: INFLIXIMAB-DYYB
     Dosage: 800 MG EVERY 6 WEEKS
     Route: 042
     Dates: start: 20201215
  12. INFLECTRA [Suspect]
     Active Substance: INFLIXIMAB-DYYB
     Dosage: 800 MG EVERY 6 WEEKS
     Route: 042
     Dates: start: 20210115
  13. VITAMIN B12 [Concomitant]
     Active Substance: CYANOCOBALAMIN
     Dosage: 1 DF
     Dates: start: 201903
  14. INFLECTRA [Suspect]
     Active Substance: INFLIXIMAB-DYYB
     Dosage: 400 MG AT 0, 2, 6 WEEKS, THEN EVERY 8 WEEKS
     Route: 042
     Dates: start: 20200214, end: 20200214
  15. INFLECTRA [Suspect]
     Active Substance: INFLIXIMAB-DYYB
     Dosage: 800 MG EVERY 6 WEEKS
     Route: 042
     Dates: start: 20200730
  16. IRON [Concomitant]
     Active Substance: IRON
     Dosage: UNK
     Route: 042
     Dates: start: 2018
  17. INFLECTRA [Suspect]
     Active Substance: INFLIXIMAB-DYYB
     Dosage: 400 MG, EVERY 6 WEEKS
     Route: 042
     Dates: start: 20200327, end: 20200619
  18. DIVALPROEX SODIUM. [Concomitant]
     Active Substance: DIVALPROEX SODIUM
     Dosage: 250 MG, 3X/DAY (TID)
     Route: 065
  19. INFLECTRA [Suspect]
     Active Substance: INFLIXIMAB-DYYB
     Dosage: 400 MG, EVERY 6 WEEKS
     Route: 042
     Dates: start: 20200619, end: 20200619
  20. INFLECTRA [Suspect]
     Active Substance: INFLIXIMAB-DYYB
     Dosage: 800 MG EVERY 6 WEEKS
     Route: 042
     Dates: start: 20210226
  21. CLONAZEPAM. [Concomitant]
     Active Substance: CLONAZEPAM
     Dosage: 25 MG, DAILY
     Route: 065

REACTIONS (13)
  - Ear infection [Unknown]
  - Drug level below therapeutic [Unknown]
  - Rash [Not Recovered/Not Resolved]
  - Blood pressure fluctuation [Unknown]
  - Autoimmune arthritis [Unknown]
  - Heart rate decreased [Unknown]
  - Blood count abnormal [Unknown]
  - Weight increased [Unknown]
  - Condition aggravated [Recovering/Resolving]
  - Arthralgia [Unknown]
  - Off label use [Unknown]
  - Rectal haemorrhage [Unknown]
  - Intentional product use issue [Unknown]

NARRATIVE: CASE EVENT DATE: 2019
